FAERS Safety Report 6602572-5 (Version None)
Quarter: 2010Q1

REPORT INFORMATION
  Report Type: 
  Country: None (occurrence: None)
  Receive Date: 20100217
  Receipt Date: 20100203
  Transmission Date: 20100710
  Serious: Yes (Hospitalization)
  Sender: FDA-Public Use
  Company Number: 231267J10USA

PATIENT
  Age: 34 Year
  Sex: Male
  Weight: 122 kg

DRUGS (1)
  1. REBIF [Suspect]
     Indication: MULTIPLE SCLEROSIS
     Dosage: 22 MCG
     Dates: start: 20080101

REACTIONS (15)
  - ABASIA [None]
  - ABDOMINAL DISCOMFORT [None]
  - BACK PAIN [None]
  - CENTRAL NERVOUS SYSTEM LESION [None]
  - DIPLOPIA [None]
  - DYSPEPSIA [None]
  - ECONOMIC PROBLEM [None]
  - GAIT DISTURBANCE [None]
  - HYPERHIDROSIS [None]
  - HYPOAESTHESIA [None]
  - INAPPROPRIATE SCHEDULE OF DRUG ADMINISTRATION [None]
  - INFLUENZA LIKE ILLNESS [None]
  - INTERVERTEBRAL DISC DEGENERATION [None]
  - LOSS OF EMPLOYMENT [None]
  - PARAESTHESIA [None]
